FAERS Safety Report 6369248-3 (Version None)
Quarter: 2009Q3

REPORT INFORMATION
  Report Type: 
  Country: None (occurrence: None)
  Receive Date: 20090916
  Receipt Date: 20090908
  Transmission Date: 20100115
  Serious: Yes (Other)
  Sender: FDA-Public Use
  Company Number: ADR20182009

PATIENT
  Age: 60 Year
  Sex: Female

DRUGS (5)
  1. SERTRALINE HCL [Suspect]
     Indication: DEPRESSION
  2. PAROXETINE HCL [Suspect]
     Indication: DEPRESSION
  3. VENLAFAXINE HCL [Suspect]
     Indication: DEPRESSION
  4. ESCITALOPRAM [Concomitant]
  5. FLUOXETINE [Concomitant]

REACTIONS (1)
  - DISTURBANCE IN SEXUAL AROUSAL [None]
